FAERS Safety Report 17398876 (Version 1)
Quarter: 2020Q1

REPORT INFORMATION
  Report Type: Spontaneous
  Country: KR (occurrence: US)
  Receive Date: 20200210
  Receipt Date: 20200210
  Transmission Date: 20200409
  Serious: No
  Sender: FDA-Public Use
  Company Number: US-AKRON, INC.-2080066

PATIENT
  Age: 69 Year
  Sex: Female

DRUGS (1)
  1. IC-GREEN [Suspect]
     Active Substance: INDOCYANINE GREEN

REACTIONS (3)
  - Anaphylactic shock [None]
  - Rash [None]
  - Blood pressure decreased [None]
